FAERS Safety Report 11213588 (Version 1)
Quarter: 2015Q2

REPORT INFORMATION
  Report Type: Spontaneous
  Country: FR (occurrence: FR)
  Receive Date: 20150623
  Receipt Date: 20150623
  Transmission Date: 20150821
  Serious: Yes (Other)
  Sender: FDA-Public Use
  Company Number: FR-ASTRAZENECA-2015SE59899

PATIENT
  Age: 23834 Day
  Sex: Male

DRUGS (10)
  1. ESBRIET [Suspect]
     Active Substance: PIRFENIDONE
     Indication: IDIOPATHIC PULMONARY FIBROSIS
     Dosage: 267 MG THREE CAPSULES A DAY FOR 7 DAYS
     Route: 048
     Dates: start: 20150227, end: 20150311
  2. INEXIUM [Suspect]
     Active Substance: ESOMEPRAZOLE
     Route: 048
     Dates: start: 20141215
  3. ESBRIET [Suspect]
     Active Substance: PIRFENIDONE
     Indication: IDIOPATHIC PULMONARY FIBROSIS
     Dosage: 267 MG THREE CAPSULES A DAY FOR 7 DAYS
     Route: 048
     Dates: start: 20141215
  4. ESBRIET [Suspect]
     Active Substance: PIRFENIDONE
     Indication: IDIOPATHIC PULMONARY FIBROSIS
     Dosage: 267 MG NINE CAPSULES A DAY
     Route: 048
     Dates: end: 20150128
  5. SOLUPRED [Suspect]
     Active Substance: PREDNISOLONE
     Indication: COUGH
     Route: 048
     Dates: start: 20141215
  6. COVERSYL [Concomitant]
     Active Substance: PERINDOPRIL
  7. KARDEGIC [Concomitant]
     Active Substance: ASPIRIN LYSINE
  8. PLAVIX [Concomitant]
     Active Substance: CLOPIDOGREL BISULFATE
  9. ESBRIET [Suspect]
     Active Substance: PIRFENIDONE
     Indication: IDIOPATHIC PULMONARY FIBROSIS
     Dosage: 267 MG SIX CAPSULES A DAY FOR 7 DAYS
     Route: 048
  10. ESBRIET [Suspect]
     Active Substance: PIRFENIDONE
     Indication: IDIOPATHIC PULMONARY FIBROSIS
     Dosage: 267 MG THREE CAPSULES A DAY FOR 7 DAYS
     Route: 048
     Dates: start: 20150128, end: 20150202

REACTIONS (5)
  - Decreased appetite [Recovered/Resolved]
  - Neutrophilia [Recovering/Resolving]
  - Nausea [Recovered/Resolved]
  - Leukocytosis [Recovering/Resolving]
  - Asthenia [Recovered/Resolved]

NARRATIVE: CASE EVENT DATE: 20141229
